FAERS Safety Report 11720079 (Version 1)
Quarter: 2015Q4

REPORT INFORMATION
  Report Type: Spontaneous
  Country: IT (occurrence: IT)
  Receive Date: 20151110
  Receipt Date: 20151110
  Transmission Date: 20160304
  Serious: Yes (Other)
  Sender: FDA-Public Use
  Company Number: IT-PFIZER INC-2015379523

PATIENT
  Age: 82 Year
  Sex: Male

DRUGS (7)
  1. CARDIOASPIRIN [Concomitant]
     Active Substance: ASPIRIN
  2. SINVACOR [Concomitant]
     Active Substance: SIMVASTATIN
     Dosage: 20 MG, UNK
  3. XANAX [Suspect]
     Active Substance: ALPRAZOLAM
     Indication: ADJUSTMENT DISORDER
     Dosage: 5 GTT IN THE EVENING AND AS NEEDED
     Dates: start: 2013
  4. CIPRALEX [Concomitant]
     Active Substance: ESCITALOPRAM OXALATE
     Dosage: 12 GTT, UNK
  5. XANAX [Suspect]
     Active Substance: ALPRAZOLAM
     Indication: ANXIETY
     Dosage: 35 GTT, TOTAL
     Dates: start: 20151020, end: 20151020
  6. XANAX [Suspect]
     Active Substance: ALPRAZOLAM
     Indication: DEPRESSION
  7. MODURETIC 5-50 [Concomitant]
     Active Substance: AMILORIDE HYDROCHLORIDE\HYDROCHLOROTHIAZIDE

REACTIONS (6)
  - Presyncope [Recovering/Resolving]
  - Muscular weakness [Recovering/Resolving]
  - Overdose [Recovering/Resolving]
  - Balance disorder [Recovering/Resolving]
  - Pathological fracture [Recovering/Resolving]
  - Fall [Recovering/Resolving]

NARRATIVE: CASE EVENT DATE: 20151020
